FAERS Safety Report 9996490 (Version 2)
Quarter: 2015Q4

REPORT INFORMATION
  Report Type: Spontaneous
  Country: US (occurrence: US)
  Receive Date: 20140311
  Receipt Date: 20151210
  Transmission Date: 20160305
  Serious: Yes (Hospitalization, Other)
  Sender: FDA-Public Use
  Company Number: US-BAYER-2014-035123

PATIENT
  Age: 30 Year
  Sex: Female
  Weight: 99.32 kg

DRUGS (3)
  1. YASMIN [Suspect]
     Active Substance: DROSPIRENONE\ETHINYL ESTRADIOL
  2. ASPIRIN. [Concomitant]
     Active Substance: ASPIRIN
  3. YAZ [Suspect]
     Active Substance: DROSPIRENONE\ETHINYL ESTRADIOL

REACTIONS (2)
  - Embolism arterial [None]
  - Transient ischaemic attack [None]

NARRATIVE: CASE EVENT DATE: 20111204
